FAERS Safety Report 10983341 (Version 2)
Quarter: 2015Q2

REPORT INFORMATION
  Report Type: Spontaneous
  Country: US (occurrence: US)
  Receive Date: 20150403
  Receipt Date: 20150505
  Transmission Date: 20150821
  Serious: Yes (Hospitalization)
  Sender: FDA-Public Use
  Company Number: PHEH2015US005928

PATIENT
  Age: 85 Year
  Sex: Female

DRUGS (10)
  1. EXELON PATCH [Suspect]
     Active Substance: RIVASTIGMINE
     Dosage: 13.3 MG, QD
     Route: 062
  2. COCONUT OIL [Concomitant]
     Active Substance: COCONUT OIL
     Indication: PRODUCT USED FOR UNKNOWN INDICATION
     Dosage: 100 MG, UNK
     Route: 065
  3. EXELON PATCH [Suspect]
     Active Substance: RIVASTIGMINE
     Dosage: 2 DF, UNK (2 PATCHES AT THE SAME TIME)
     Route: 062
  4. NAMENDA [Concomitant]
     Active Substance: MEMANTINE HYDROCHLORIDE
     Indication: PRODUCT USED FOR UNKNOWN INDICATION
     Dosage: 28 MG, QD
     Route: 065
  5. LEXAPRO [Concomitant]
     Active Substance: ESCITALOPRAM OXALATE
     Indication: PRODUCT USED FOR UNKNOWN INDICATION
     Dosage: 20 MG, QD
     Route: 065
  6. EXELON PATCH [Suspect]
     Active Substance: RIVASTIGMINE
     Indication: PRODUCT USED FOR UNKNOWN INDICATION
     Dosage: 4.6 MG, UNK
     Route: 062
  7. WELLBUTRIN [Concomitant]
     Active Substance: BUPROPION HYDROCHLORIDE
     Indication: PRODUCT USED FOR UNKNOWN INDICATION
     Dosage: 150 MG, QD
     Route: 065
  8. TOPROL XL [Concomitant]
     Active Substance: METOPROLOL SUCCINATE
     Indication: PRODUCT USED FOR UNKNOWN INDICATION
     Dosage: 25 MG, BID
     Route: 065
  9. ASPIRIN. [Concomitant]
     Active Substance: ASPIRIN
     Indication: PRODUCT USED FOR UNKNOWN INDICATION
     Dosage: 81 MG, QD
     Route: 065
  10. FUROSEMIDE. [Concomitant]
     Active Substance: FUROSEMIDE
     Indication: PRODUCT USED FOR UNKNOWN INDICATION
     Dosage: 20 MG, QD
     Route: 065

REACTIONS (8)
  - Drug administration error [Unknown]
  - Skin irritation [Unknown]
  - Hallucination [Unknown]
  - Product adhesion issue [Unknown]
  - Nightmare [Unknown]
  - Overdose [Unknown]
  - Wrong technique in drug usage process [Unknown]
  - Incorrect drug administration duration [Unknown]

NARRATIVE: CASE EVENT DATE: 201410
